FAERS Safety Report 10440121 (Version 1)
Quarter: 2014Q3

REPORT INFORMATION
  Report Type: Spontaneous
  Country: US (occurrence: US)
  Receive Date: 20140908
  Receipt Date: 20140908
  Transmission Date: 20150326
  Serious: No
  Sender: FDA-Public Use
  Company Number: US-BRISTOL-MYERS SQUIBB COMPANY-19418029

PATIENT
  Age: 47 Year
  Sex: Female
  Weight: 120.18 kg

DRUGS (5)
  1. LITHIUM CARBONATE. [Concomitant]
     Active Substance: LITHIUM CARBONATE
  2. ABILIFY [Suspect]
     Active Substance: ARIPIPRAZOLE
     Indication: BIPOLAR DISORDER
     Dates: start: 201208, end: 201306
  3. TRAZODONE HYDROCHLORIDE. [Concomitant]
     Active Substance: TRAZODONE HYDROCHLORIDE
  4. ABILIFY [Suspect]
     Active Substance: ARIPIPRAZOLE
     Indication: DEPRESSION
     Dates: start: 201208, end: 201306
  5. LEVOTHYROXINE [Concomitant]
     Active Substance: LEVOTHYROXINE

REACTIONS (1)
  - Tardive dyskinesia [Not Recovered/Not Resolved]

NARRATIVE: CASE EVENT DATE: 201304
